FAERS Safety Report 24031684 (Version 2)
Quarter: 2024Q3

REPORT INFORMATION
  Report Type: Spontaneous
  Country: US (occurrence: US)
  Receive Date: 20240629
  Receipt Date: 20240710
  Transmission Date: 20241016
  Serious: Yes (Life-Threatening, Hospitalization, Other)
  Sender: AUROBINDO
  Company Number: US-MLMSERVICE-20240613-PI100366-00225-1

PATIENT
  Age: 26 Year
  Sex: Female

DRUGS (2)
  1. MINOXIDIL [Suspect]
     Active Substance: MINOXIDIL
     Indication: Hypertension
     Dosage: 2.5 MILLIGRAM, ONCE A DAY
     Route: 065
  2. MINOXIDIL [Suspect]
     Active Substance: MINOXIDIL
     Dosage: 5 MILLIGRAM, TWO TIMES A DAY, TITRATED TO 5MG TWICE DAILY
     Route: 065

REACTIONS (2)
  - Cardiac tamponade [Recovered/Resolved]
  - Pericardial effusion [Recovered/Resolved]
